FAERS Safety Report 14929980 (Version 1)
Quarter: 2018Q2

REPORT INFORMATION
  Report Type: Spontaneous
  Country: US (occurrence: US)
  Receive Date: 20180523
  Receipt Date: 20180523
  Transmission Date: 20180711
  Serious: No
  Sender: FDA-Public Use
  Company Number: US-TARO-2018TAR00244

PATIENT

DRUGS (1)
  1. PHENYTOIN CHEWABLE TABLETS USP 50 MG [Suspect]
     Active Substance: PHENYTOIN

REACTIONS (2)
  - Drug ineffective [Unknown]
  - Drug level below therapeutic [Unknown]
